FAERS Safety Report 24951722 (Version 1)
Quarter: 2025Q1

REPORT INFORMATION
  Report Type: Spontaneous
  Country: US (occurrence: US)
  Receive Date: 20250210
  Receipt Date: 20250210
  Transmission Date: 20250409
  Serious: Yes (Hospitalization, Other)
  Sender: PFIZER
  Company Number: US-PFIZER INC-PV202500014543

PATIENT
  Sex: Female

DRUGS (3)
  1. SIROLIMUS [Suspect]
     Active Substance: SIROLIMUS
  2. JAKAFI [Suspect]
     Active Substance: RUXOLITINIB
     Indication: Graft versus host disease
     Dosage: (5 MILLIGRAM, BID)
     Route: 048
     Dates: start: 202411
  3. XOSPATA [Concomitant]
     Active Substance: GILTERITINIB

REACTIONS (2)
  - Pneumonia [Recovered/Resolved]
  - Immunosuppression [Unknown]
